FAERS Safety Report 6794821-8 (Version None)
Quarter: 2010Q2

REPORT INFORMATION
  Report Type: 
  Country: None (occurrence: None)
  Receive Date: 20100624
  Receipt Date: 20100624
  Transmission Date: 20101027
  Serious: Yes (Life-Threatening, Other)
  Sender: FDA-Public Use
  Company Number: None

PATIENT
  Age: 32 Year
  Sex: Female
  Weight: 61.2356 kg

DRUGS (3)
  1. SEPTOCAINE [Suspect]
     Indication: TOOTH EXTRACTION
     Dosage: 4% 1:100,000 MEPI 2 SHOTS IN MOUTH INJECTION
     Route: 004
     Dates: start: 20100601
  2. STEROID -- CORTISOL [Concomitant]
  3. HYDROXYZINE [Concomitant]

REACTIONS (1)
  - ANAPHYLACTIC REACTION [None]
